FAERS Safety Report 23955125 (Version 1)
Quarter: 2024Q2

REPORT INFORMATION
  Report Type: Spontaneous
  Country: US (occurrence: US)
  Receive Date: 20240610
  Receipt Date: 20240610
  Transmission Date: 20240715
  Serious: No
  Sender: FDA-Public Use
  Company Number: US-TEVA-VS-3203691

PATIENT
  Age: 72 Year
  Sex: Female

DRUGS (2)
  1. OXYBUTYNIN [Suspect]
     Active Substance: OXYBUTYNIN\OXYBUTYNIN CHLORIDE
     Indication: Product used for unknown indication
     Route: 065
     Dates: start: 202401
  2. MIRABEGRON [Suspect]
     Active Substance: MIRABEGRON
     Indication: Product used for unknown indication
     Route: 048

REACTIONS (6)
  - COVID-19 [Unknown]
  - Panic disorder [Unknown]
  - Fall [Recovering/Resolving]
  - Impaired driving ability [Recovered/Resolved]
  - Limb injury [Recovering/Resolving]
  - Visual impairment [Recovered/Resolved]
